FAERS Safety Report 7957816-4 (Version None)
Quarter: 2011Q4

REPORT INFORMATION
  Report Type: 
  Country: None (occurrence: None)
  Receive Date: 20111205
  Receipt Date: 20111124
  Transmission Date: 20120403
  Serious: Yes (Other)
  Sender: FDA-Public Use
  Company Number: CH-ASTRAZENECA-2011SE71740

PATIENT
  Age: 85 Year
  Sex: Female
  Weight: 70 kg

DRUGS (12)
  1. METOPROLOL SUCCINATE [Suspect]
     Route: 048
     Dates: end: 20111014
  2. OXYCODONE HCL [Suspect]
     Dosage: OXYCONORM DROPS 1 MG SIX TIMES A DAY
     Dates: start: 20111011, end: 20111013
  3. ESCITALOPRAM [Concomitant]
     Route: 048
  4. BACTRIM [Concomitant]
     Dates: start: 20111007, end: 20111013
  5. OXYCODONE HCL [Suspect]
     Dosage: OXYCOTIN (RETARD TYPE) 10 MG DAILY IN THE MORNING AND 5 MG IN THE EVENING
     Route: 048
  6. OXYCODONE HCL [Suspect]
     Dosage: 1 ML (EQUIVALENT WITH 10 MG) ON TEN OCCASION
     Dates: start: 20111011, end: 20111013
  7. TORSEMIDE [Suspect]
     Route: 048
     Dates: end: 20111013
  8. DIGOXIN [Concomitant]
     Route: 048
  9. PERINDOPRIL ERBUMINE [Suspect]
     Route: 048
     Dates: end: 20111013
  10. ALDACTONE [Suspect]
     Route: 048
     Dates: end: 20111012
  11. SEROQUEL [Concomitant]
     Route: 048
     Dates: start: 20111010
  12. SINTROM [Concomitant]
     Route: 048

REACTIONS (5)
  - RENAL FAILURE ACUTE [None]
  - HYPOTENSION [None]
  - ACCIDENTAL OVERDOSE [None]
  - HALLUCINATION [None]
  - CONFUSIONAL STATE [None]
